FAERS Safety Report 23514042 (Version 2)
Quarter: 2024Q1

REPORT INFORMATION
  Report Type: Spontaneous
  Country: GB (occurrence: GB)
  Receive Date: 20240212
  Receipt Date: 20240223
  Transmission Date: 20240410
  Serious: Yes (Death, Hospitalization)
  Sender: FDA-Public Use
  Company Number: GB-VA000000605-2023008707

PATIENT
  Sex: Male

DRUGS (5)
  1. EVEROLIMUS [Suspect]
     Active Substance: EVEROLIMUS
     Indication: Product used for unknown indication
     Dosage: UNK
     Route: 065
  2. PASIREOTIDE [Suspect]
     Active Substance: PASIREOTIDE
     Indication: Insulinoma
     Dosage: 20 MILLIGRAM, Q28D (20 MILLIGRAM EVERY 4 WEEKS)
     Route: 030
     Dates: start: 20231127
  3. PASIREOTIDE [Suspect]
     Active Substance: PASIREOTIDE
     Indication: Hypoglycaemia
     Dosage: 60 MILLIGRAM, Q28D (60 MG EVERY 4 WEEKS)
     Route: 030
     Dates: start: 20231223
  4. LUTATHERA [Concomitant]
     Active Substance: LUTETIUM OXODOTREOTIDE LU-177
     Indication: Hypoglycaemia
     Dosage: UNK
     Route: 065
     Dates: start: 2018
  5. LUTATHERA [Concomitant]
     Active Substance: LUTETIUM OXODOTREOTIDE LU-177
     Indication: Insulinoma
     Dosage: 8 (UNK), WEEKLY (SECOND COURSE OF TREATMENT)
     Route: 065

REACTIONS (2)
  - Pneumonitis [Fatal]
  - Off label use [Recovered/Resolved]

NARRATIVE: CASE EVENT DATE: 20231127
